FAERS Safety Report 9604518 (Version 2)
Quarter: 2013Q4

REPORT INFORMATION
  Report Type: Report from Study
  Country: US (occurrence: US)
  Receive Date: 20131008
  Receipt Date: 20131111
  Transmission Date: 20140711
  Serious: Yes (Hospitalization)
  Sender: FDA-Public Use
  Company Number: US-US-EMD SERONO, INC.-7241285

PATIENT
  Age: 58 Year
  Sex: Female

DRUGS (3)
  1. REBIF [Suspect]
     Indication: MULTIPLE SCLEROSIS
     Dates: start: 2011, end: 201209
  2. REBIF [Suspect]
     Route: 058
     Dates: start: 20130603
  3. VASOTEC                            /00574902/ [Concomitant]
     Indication: HYPERTENSION
     Route: 048
     Dates: start: 201304

REACTIONS (2)
  - Cardiac flutter [Not Recovered/Not Resolved]
  - Fatigue [Not Recovered/Not Resolved]
